FAERS Safety Report 13023607 (Version 1)
Quarter: 2016Q4

REPORT INFORMATION
  Report Type: Spontaneous
  Country: US (occurrence: US)
  Receive Date: 20161212
  Receipt Date: 20161212
  Transmission Date: 20170207
  Serious: Yes (Other)
  Sender: FDA-Public Use
  Company Number: None

PATIENT
  Age: 59 Year
  Sex: Female
  Weight: 67.5 kg

DRUGS (1)
  1. GATAFLOXACIN [Suspect]
     Active Substance: GATIFLOXACIN
     Indication: ANTIBIOTIC PROPHYLAXIS
     Dosage: ?          QUANTITY:2.5 DROP(S);?
     Route: 047
     Dates: start: 20161208, end: 20161212

REACTIONS (1)
  - Instillation site pain [None]

NARRATIVE: CASE EVENT DATE: 20161208
